FAERS Safety Report 4990544-6 (Version None)
Quarter: 2006Q2

REPORT INFORMATION
  Report Type: 
  Country: None (occurrence: None)
  Receive Date: 20060503
  Receipt Date: 20060424
  Transmission Date: 20061013
  Serious: Yes (Disabling)
  Sender: FDA-Public Use
  Company Number: BR-JNJFOC-20060405712

PATIENT
  Age: 59 Year
  Sex: Female
  Weight: 45 kg

DRUGS (4)
  1. ACETAMINOPHEN W/ CODEINE [Suspect]
     Indication: PAIN
  2. GLIBENCLAMIDE [Concomitant]
  3. CAPTOPRIL [Concomitant]
     Indication: HYPERTENSION
  4. METHYLDOPA [Concomitant]
     Indication: HYPERTENSION

REACTIONS (2)
  - FACIAL PARESIS [None]
  - SPEECH DISORDER [None]
